FAERS Safety Report 8458961-X (Version None)
Quarter: 2012Q2

REPORT INFORMATION
  Report Type: 
  Country: None (occurrence: None)
  Receive Date: 20120622
  Receipt Date: 20120619
  Transmission Date: 20120825
  Serious: Yes (Life-Threatening, Other)
  Sender: FDA-Public Use
  Company Number: US-ROCHE-1078130

PATIENT
  Sex: Female
  Weight: 84.444 kg

DRUGS (9)
  1. ACTEMRA [Suspect]
     Indication: RHEUMATOID ARTHRITIS
     Route: 042
     Dates: start: 20101109
  2. CELEBREX [Concomitant]
  3. PREDNISONE TAB [Concomitant]
  4. LISINOPRIL [Concomitant]
  5. LIDODERM [Concomitant]
     Dosage: PATCHES
  6. METHOTREXATE [Concomitant]
  7. FOLIC ACID [Concomitant]
  8. RESTASIS [Concomitant]
  9. CALCIUM [Concomitant]

REACTIONS (2)
  - CEREBROVASCULAR ACCIDENT [None]
  - THALAMIC INFARCTION [None]
